FAERS Safety Report 18628933 (Version 1)
Quarter: 2020Q4

REPORT INFORMATION
  Report Type: Spontaneous
  Country: US (occurrence: US)
  Receive Date: 20201217
  Receipt Date: 20201217
  Transmission Date: 20210114
  Serious: No
  Sender: FDA-Public Use
  Company Number: US-FERRINGPH-2020FE06135

PATIENT
  Age: 40 Year
  Sex: Female
  Weight: 55.78 kg

DRUGS (2)
  1. GONAL-F [Concomitant]
     Active Substance: FOLLITROPIN
     Indication: PRODUCT USE IN UNAPPROVED INDICATION
     Dosage: 450 IU
     Route: 065
  2. MENOPUR [Suspect]
     Active Substance: FOLLITROPIN\LUTEINIZING HORMONE
     Indication: ASSISTED REPRODUCTIVE TECHNOLOGY
     Dosage: UNK
     Route: 065
     Dates: start: 202008

REACTIONS (3)
  - Product quality issue [Unknown]
  - Therapeutic response decreased [Not Recovered/Not Resolved]
  - Product storage error [Recovered/Resolved]

NARRATIVE: CASE EVENT DATE: 202008
